FAERS Safety Report 15320304 (Version 2)
Quarter: 2018Q4

REPORT INFORMATION
  Report Type: Spontaneous
  Country: GB (occurrence: GB)
  Receive Date: 20180827
  Receipt Date: 20180903
  Transmission Date: 20190204
  Serious: Yes (Hospitalization)
  Sender: FDA-Public Use
  Company Number: GB-ROCHE-2171906

PATIENT
  Age: 21 Year
  Sex: Male

DRUGS (5)
  1. NOOPEPT [Suspect]
     Active Substance: OMBERACETAM
     Indication: PRODUCT USED FOR UNKNOWN INDICATION
     Route: 045
  2. DULOXETINE HYDROCHLORIDE. [Suspect]
     Active Substance: DULOXETINE HYDROCHLORIDE
     Indication: PRODUCT USED FOR UNKNOWN INDICATION
     Route: 065
  3. RISPERIDONE. [Suspect]
     Active Substance: RISPERIDONE
     Indication: PRODUCT USED FOR UNKNOWN INDICATION
     Route: 065
  4. COCAINE [Suspect]
     Active Substance: COCAINE
     Indication: PRODUCT USED FOR UNKNOWN INDICATION
     Route: 065
  5. DIAZEPAM. [Suspect]
     Active Substance: DIAZEPAM
     Indication: PRODUCT USED FOR UNKNOWN INDICATION
     Route: 065

REACTIONS (7)
  - Hypotension [Unknown]
  - Intentional product misuse [Unknown]
  - Palpitations [Unknown]
  - Extrasystoles [Unknown]
  - Dystonia [Recovered/Resolved]
  - Somnolence [Unknown]
  - Sinus tachycardia [Unknown]
